FAERS Safety Report 15486889 (Version 1)
Quarter: 2018Q4

REPORT INFORMATION
  Report Type: Spontaneous
  Country: FI (occurrence: FI)
  Receive Date: 20181011
  Receipt Date: 20181011
  Transmission Date: 20190205
  Serious: Yes (Other)
  Sender: FDA-Public Use
  Company Number: FI-ACCORD-061935

PATIENT
  Age: 49 Year
  Sex: Female

DRUGS (6)
  1. AVASTIN [Suspect]
     Active Substance: BEVACIZUMAB
     Indication: METASTASES TO PERITONEUM
     Dosage: TREATMENT WITH PAUSES, CONTINUOUSLY SINCE MAY-2016. 4 TIMES
     Route: 065
     Dates: start: 2015, end: 2017
  2. PEGYLATED LIPOSOMAL IRINOTECAN [Suspect]
     Active Substance: IRINOTECAN HYDROCHLORIDE
     Indication: METASTASES TO PERITONEUM
     Dosage: 4 TIMES, TREATMENT WITH PAUSES, CONTINUOUSLY SINCE MAY 2016
     Dates: start: 2015, end: 2017
  3. OXALIPLATIN. [Suspect]
     Active Substance: OXALIPLATIN
     Indication: METASTASES TO PERITONEUM
     Dosage: 3 TIMES, ONE TIME, 4 TIMES
     Route: 065
     Dates: start: 2014, end: 2014
  4. XELODA [Suspect]
     Active Substance: CAPECITABINE
     Indication: METASTASES TO PERITONEUM
     Dosage: ONE TIME, 3 TIMES, 4 TIMES. TREATMENT WITH PAUSES, CONTINUOUSLY SINCE MAY-2016.
     Dates: start: 2014, end: 2014
  5. IRINOTECAN [Suspect]
     Active Substance: IRINOTECAN
     Indication: METASTASES TO PERITONEUM
     Dosage: TREATMENT WITH PAUSES, CONTINUOUSLY SINCE MAY 2016. 4 TIMES. 6 TREATMENTS
     Dates: start: 20170302, end: 20170628
  6. PANITUMUMAB [Concomitant]
     Active Substance: PANITUMUMAB
     Indication: METASTASES TO PERITONEUM
     Dosage: 6 TREATMENTS
     Dates: start: 20170302, end: 20170629

REACTIONS (6)
  - Fatigue [Unknown]
  - Vomiting [Unknown]
  - Neuropathy peripheral [Unknown]
  - Off label use [Unknown]
  - Dyspepsia [Unknown]
  - Hypersensitivity [Unknown]

NARRATIVE: CASE EVENT DATE: 2017
